FAERS Safety Report 25762043 (Version 1)
Quarter: 2025Q3

REPORT INFORMATION
  Report Type: Spontaneous
  Country: US (occurrence: US)
  Receive Date: 20250904
  Receipt Date: 20250904
  Transmission Date: 20251021
  Serious: No
  Sender: CIPLA
  Company Number: US-CIPLA LTD.-2024US15731

PATIENT

DRUGS (2)
  1. DICLOFENAC [Suspect]
     Active Substance: DICLOFENAC
     Indication: Arthritis
     Route: 061
  2. DICLOFENAC [Suspect]
     Active Substance: DICLOFENAC
     Indication: Periarthritis
     Dosage: UNK, BID (APPLIED IT TWICE A DAY) (ANOTHER TOPICAL GEL)
     Route: 061

REACTIONS (2)
  - Product prescribing issue [Unknown]
  - Drug ineffective for unapproved indication [Unknown]
